FAERS Safety Report 20731102 (Version 1)
Quarter: 2022Q2

REPORT INFORMATION
  Report Type: Spontaneous
  Country: US (occurrence: None)
  Receive Date: 20220420
  Receipt Date: 20220420
  Transmission Date: 20220721
  Serious: No
  Sender: FDA-Public Use
  Company Number: None

PATIENT
  Age: 70 Year
  Sex: Male
  Weight: 114 kg

DRUGS (12)
  1. EVUSHELD [Suspect]
     Active Substance: CILGAVIMAB\TIXAGEVIMAB
     Indication: COVID-19
     Route: 030
     Dates: start: 20220408, end: 20220408
  2. Cellcept [Concomitant]
  3. ATORVASTATIN [Concomitant]
  4. LOSARTAN [Concomitant]
  5. TRAZODONE [Concomitant]
  6. AMLODIPINE [Concomitant]
  7. TACROLIMUS [Concomitant]
     Active Substance: TACROLIMUS
  8. doxapin [Concomitant]
  9. LIRAGLUTIDE [Concomitant]
  10. INSULIN GLARGINE [Concomitant]
     Active Substance: INSULIN GLARGINE
  11. PREDNISONE [Concomitant]
  12. SILDENAFIL [Concomitant]
     Active Substance: SILDENAFIL

REACTIONS (3)
  - Nausea [None]
  - Vomiting [None]
  - Body temperature increased [None]

NARRATIVE: CASE EVENT DATE: 20220410
